FAERS Safety Report 15546122 (Version 1)
Quarter: 2018Q4

REPORT INFORMATION
  Report Type: Spontaneous
  Country: US (occurrence: US)
  Receive Date: 20181024
  Receipt Date: 20181024
  Transmission Date: 20190205
  Serious: No
  Sender: FDA-Public Use
  Company Number: US-COVIS PHARMA B.V.-2018COV03689

PATIENT
  Age: 72 Year
  Sex: Female
  Weight: 76.19 kg

DRUGS (11)
  1. TIZANIDINE. [Suspect]
     Active Substance: TIZANIDINE
     Indication: MUSCLE RELAXANT THERAPY
     Dosage: 2 MG
     Route: 048
     Dates: start: 20180523, end: 201805
  2. VALSARTAN. [Concomitant]
     Active Substance: VALSARTAN
  3. IVIG [Concomitant]
     Active Substance: HUMAN IMMUNOGLOBULIN G
     Indication: LEUKAEMIA
  4. ESTROGEN [Concomitant]
     Active Substance: ESTROGENS
  5. ATORVASTATIN [Concomitant]
     Active Substance: ATORVASTATIN
  6. ^METROPROLOL SUCC^ [Concomitant]
  7. LATANOPROST. [Concomitant]
     Active Substance: LATANOPROST
     Indication: GLAUCOMA
  8. MIRTAZAPINE. [Concomitant]
     Active Substance: MIRTAZAPINE
     Indication: INSOMNIA
  9. AMLODIPINE [Concomitant]
     Active Substance: AMLODIPINE BESYLATE
  10. ESTROGEN [Concomitant]
     Active Substance: ESTROGENS
  11. METFORMIN [Concomitant]
     Active Substance: METFORMIN HYDROCHLORIDE

REACTIONS (8)
  - Speech disorder [Unknown]
  - Dry eye [Not Recovered/Not Resolved]
  - Dry skin [Unknown]
  - Urinary tract infection [Unknown]
  - Aptyalism [Unknown]
  - Dry mouth [Recovering/Resolving]
  - Fatigue [Unknown]
  - Somnolence [Unknown]

NARRATIVE: CASE EVENT DATE: 20180523
